FAERS Safety Report 6192473-1 (Version None)
Quarter: 2009Q2

REPORT INFORMATION
  Report Type: 
  Country: None (occurrence: None)
  Receive Date: 20090518
  Receipt Date: 20090506
  Transmission Date: 20091009
  Serious: Yes (Other)
  Sender: FDA-Public Use
  Company Number: US-AMGEN-COG345899

PATIENT
  Sex: Male

DRUGS (2)
  1. ENBREL [Suspect]
     Indication: PSORIATIC ARTHROPATHY
     Route: 058
     Dates: start: 20071124
  2. HUMIRA [Concomitant]

REACTIONS (6)
  - ARTHRALGIA [None]
  - HYPOAESTHESIA FACIAL [None]
  - LIMB INJURY [None]
  - LOCALISED INFECTION [None]
  - PARAESTHESIA [None]
  - URINARY TRACT INFECTION [None]
